FAERS Safety Report 7153306-X (Version None)
Quarter: 2010Q4

REPORT INFORMATION
  Report Type: 
  Country: None (occurrence: None)
  Receive Date: 20101130
  Receipt Date: 20101124
  Transmission Date: 20110411
  Serious: Yes (Death, Hospitalization, Other)
  Sender: FDA-Public Use
  Company Number: 2010US004784

PATIENT
  Age: 52 Year
  Sex: Male

DRUGS (4)
  1. PROGRAF [Suspect]
     Indication: GRAFT VERSUS HOST DISEASE
  2. METHYLPREDNISOLONE [Suspect]
     Indication: GRAFT VERSUS HOST DISEASE
     Dosage: 2 MG/KG, UID/QD
  3. SIROLIMUS (RAPAMUNE) [Suspect]
     Indication: GRAFT VERSUS HOST DISEASE
  4. IMATINIB MESYLATE [Suspect]
     Indication: GRAFT VERSUS HOST DISEASE

REACTIONS (7)
  - BRONCHOPULMONARY ASPERGILLOSIS [None]
  - H1N1 INFLUENZA [None]
  - MYCOBACTERIUM AVIUM COMPLEX INFECTION [None]
  - PNEUMONIA INFLUENZAL [None]
  - RESPIRATORY FAILURE [None]
  - RHINOVIRUS INFECTION [None]
  - STAPHYLOCOCCAL INFECTION [None]
